FAERS Safety Report 16424773 (Version 1)
Quarter: 2019Q2

REPORT INFORMATION
  Report Type: Spontaneous
  Country: FR (occurrence: FR)
  Receive Date: 20190613
  Receipt Date: 20190613
  Transmission Date: 20190711
  Serious: Yes (Hospitalization, Other)
  Sender: FDA-Public Use
  Company Number: FR-PFIZER INC-2019246083

PATIENT
  Age: 52 Year
  Sex: Male

DRUGS (4)
  1. LYSANXIA [Interacting]
     Active Substance: PRAZEPAM
     Indication: BACK PAIN
     Dosage: 30 MG, 1X/DAY
     Route: 048
     Dates: end: 20190402
  2. ACTISKENAN [Interacting]
     Active Substance: MORPHINE SULFATE
     Indication: BACK PAIN
     Dosage: 40 MG, 1X/DAY
     Route: 048
     Dates: end: 20190402
  3. MOSCONTIN L.P. [Interacting]
     Active Substance: MORPHINE SULFATE
     Indication: BACK PAIN
     Dosage: 400 MG, 1X/DAY
     Route: 048
     Dates: end: 20190402
  4. LYRICA [Suspect]
     Active Substance: PREGABALIN
     Indication: BACK PAIN
     Dosage: 600 MG, 1X/DAY
     Route: 048
     Dates: end: 20190402

REACTIONS (5)
  - Product use issue [Unknown]
  - Confusional state [Recovered/Resolved]
  - Drug interaction [Unknown]
  - Respiratory failure [Recovered/Resolved]
  - Off label use [Unknown]

NARRATIVE: CASE EVENT DATE: 20190402
